FAERS Safety Report 9241369 (Version 2)
Quarter: 2013Q2

REPORT INFORMATION
  Report Type: Spontaneous
  Country: FR (occurrence: FR)
  Receive Date: 20130419
  Receipt Date: 20130517
  Transmission Date: 20140414
  Serious: Yes (Hospitalization)
  Sender: FDA-Public Use
  Company Number: FR-PFIZER INC-2013116845

PATIENT
  Age: 64 Year
  Sex: Male

DRUGS (13)
  1. TRIFLUCAN [Suspect]
     Indication: GASTROENTERITIS
     Dosage: UNK
     Dates: start: 20130202
  2. TRIFLUCAN [Suspect]
     Indication: CANDIDA INFECTION
  3. TIORFAN [Suspect]
     Indication: GASTROENTERITIS
     Dosage: UNK
     Dates: start: 20130202
  4. TIORFAN [Suspect]
     Indication: CANDIDA INFECTION
  5. CIFLOX [Suspect]
     Indication: DIARRHOEA
     Dosage: UNK
     Dates: start: 20130129, end: 20130202
  6. CIFLOX [Suspect]
     Indication: WEIGHT DECREASED
  7. DIOSMECTITE [Suspect]
     Indication: DIARRHOEA
     Dosage: UNTIL 6 DF PER DAY
     Dates: start: 20130129
  8. DIOSMECTITE [Suspect]
     Indication: WEIGHT DECREASED
  9. DIOSMECTITE [Suspect]
     Indication: GASTROENTERITIS
  10. DIOSMECTITE [Suspect]
     Indication: CANDIDA INFECTION
  11. GRANOCYTE [Suspect]
     Dosage: UNK
     Dates: start: 20130130, end: 20130130
  12. DIFFU K [Concomitant]
     Indication: GASTROENTERITIS
     Dosage: UNK
     Dates: start: 20130201
  13. DIFFU K [Concomitant]
     Indication: CANDIDA INFECTION

REACTIONS (1)
  - Toxic epidermal necrolysis [Recovering/Resolving]
